FAERS Safety Report 9604129 (Version 4)
Quarter: 2014Q1

REPORT INFORMATION
  Report Type: Report from Study
  Country: DE (occurrence: DE)
  Receive Date: 20131008
  Receipt Date: 20140318
  Transmission Date: 20141002
  Serious: Yes (Death)
  Sender: FDA-Public Use
  Company Number: DE-ROCHE-1285636

PATIENT
  Age: 64 Year
  Sex: Female
  Weight: 48 kg

DRUGS (16)
  1. BEVACIZUMAB [Suspect]
     Indication: BREAST CANCER
     Route: 042
     Dates: start: 20130814, end: 20130814
  2. PEMETREXED [Suspect]
     Indication: BREAST CANCER
     Route: 042
     Dates: start: 20130814, end: 20130814
  3. CARBOPLATIN [Suspect]
     Indication: BREAST CANCER
     Route: 042
     Dates: start: 20130814, end: 20130814
  4. HYDROMORPHONE [Concomitant]
     Indication: TUMOUR PAIN
     Dosage: FREQUENCY: 8-0-16 MG
     Route: 048
  5. PASPERTIN (GERMANY) [Concomitant]
     Indication: NAUSEA
     Route: 048
  6. ASS100 [Concomitant]
     Indication: CORONARY ARTERY DISEASE
     Route: 048
  7. SIMVASTATIN [Concomitant]
     Indication: CORONARY ARTERY DISEASE
     Route: 048
  8. DEXAMETHASON [Concomitant]
     Indication: NAUSEA
     Route: 048
  9. NEXIUM [Concomitant]
     Indication: GASTROOESOPHAGEAL REFLUX DISEASE
     Route: 048
  10. FOLIC ACID [Concomitant]
     Route: 048
     Dates: start: 20130719
  11. VITAMIN B12 [Concomitant]
     Route: 030
     Dates: end: 20130903
  12. LYRICA [Concomitant]
     Indication: PAIN
     Route: 048
  13. NOVALGIN (GERMANY) [Concomitant]
     Indication: PAIN
     Route: 048
  14. UNACID [Concomitant]
     Indication: LUNG INFECTION
     Dosage: FREQUENCY 2-0-2
     Route: 048
     Dates: start: 20130904, end: 20130910
  15. MIRTAZAPIN [Concomitant]
     Indication: DEPRESSION
     Route: 048
  16. MIRTAZAPIN [Concomitant]
     Indication: NAUSEA

REACTIONS (1)
  - Death [Fatal]
